FAERS Safety Report 9817184 (Version 1)
Quarter: 2014Q1

REPORT INFORMATION
  Report Type: Spontaneous
  Country: GB (occurrence: GB)
  Receive Date: 20140114
  Receipt Date: 20140114
  Transmission Date: 20141002
  Serious: Yes (Other)
  Sender: FDA-Public Use
  Company Number: PHHY2014GB002407

PATIENT
  Age: 37 Year
  Sex: Female
  Weight: 55.33 kg

DRUGS (1)
  1. FLUOXETINE [Suspect]
     Indication: DEPRESSION
     Dosage: 20 MG, UNK
     Route: 048
     Dates: start: 201310

REACTIONS (2)
  - Syncope [Not Recovered/Not Resolved]
  - Alcohol interaction [Unknown]
